FAERS Safety Report 16465432 (Version 1)
Quarter: 2019Q2

REPORT INFORMATION
  Report Type: Spontaneous
  Country: US (occurrence: US)
  Receive Date: 20190621
  Receipt Date: 20190621
  Transmission Date: 20190711
  Serious: Yes (Hospitalization)
  Sender: FDA-Public Use
  Company Number: US-PFIZER INC-3254078

PATIENT
  Age: 70 Year
  Sex: Male
  Weight: 88 kg

DRUGS (24)
  1. VENETOCLAX. [Suspect]
     Active Substance: VENETOCLAX
     Dosage: 600 MG, CYCLE 2: DAYS 1-28 OF EACH 28-DAY CYCLE, 1 IN 1 D; FREQ: CYCLICAL
     Route: 048
     Dates: start: 20160116
  2. LASIX [Concomitant]
     Active Substance: FUROSEMIDE
     Indication: HYPERTENSION
     Dosage: 40 MG, FREQ: 1 DAY; INTERVAL: 1
     Route: 048
     Dates: start: 20120101
  3. SYNTHROID [Concomitant]
     Active Substance: LEVOTHYROXINE SODIUM
     Indication: THYROIDECTOMY
     Dosage: 100 UG, FREQ: 1 DAY; INTERVAL: 1
     Route: 048
     Dates: start: 19900101
  4. VENETOCLAX. [Suspect]
     Active Substance: VENETOCLAX
     Dosage: 400 MG, FREQ: 1 DAY; INTERVAL: 1
     Route: 048
     Dates: start: 20160115, end: 20160115
  5. COLACE [Concomitant]
     Active Substance: DOCUSATE SODIUM
     Indication: CONSTIPATION PROPHYLAXIS
     Dosage: 100 MG, FREQ: 2 DAY; INTERVAL: 1
     Route: 048
     Dates: start: 20160119
  6. VALIUM [Concomitant]
     Active Substance: DIAZEPAM
     Indication: ANXIETY
     Dosage: 5 MG, AT BEDTIME; FREQ: 1 DAY; INTERVAL: 1
     Route: 048
     Dates: start: 20160119
  7. MAGNESIUM [Concomitant]
     Active Substance: MAGNESIUM
     Indication: SUPPLEMENTATION THERAPY
     Dosage: 400 MG, FREQ: 2 DAY; INTERVAL: 1
     Route: 048
     Dates: start: 20150101
  8. SPIRONOLACTONE. [Concomitant]
     Active Substance: SPIRONOLACTONE
     Indication: HYPERTENSION
     Dosage: 25 MG, FREQ: 1 DAY; INTERVAL: 1
     Route: 048
     Dates: start: 20120101
  9. INSULIN LISPRO [Concomitant]
     Active Substance: INSULIN LISPRO
     Indication: HYPERGLYCAEMIA
     Dosage: SLIDING SCALE; FREQ: 4 DAY; INTERVAL:1
     Route: 058
     Dates: start: 20130101
  10. CIPRO /00697203/ [Concomitant]
     Indication: INFECTION PROPHYLAXIS
     Dosage: 500 MG, FREQ: 2 DAY, INTERVAL: 1
     Route: 048
     Dates: start: 20160119
  11. COMPAZINE /00013302/ [Concomitant]
     Active Substance: PROCHLORPERAZINE EDISYLATE
     Indication: PROPHYLAXIS OF NAUSEA AND VOMITING
     Dosage: 10 MG, FREQ: AS NEEDED
     Dates: start: 20160119
  12. LANTUS [Concomitant]
     Active Substance: INSULIN GLARGINE
     Indication: HYPERGLYCAEMIA
     Dosage: 18 IU, AT BEDTIME, FREQ: 1 DAY; INTERVAL: 1
     Route: 058
     Dates: start: 20130101
  13. CYTARABINE. [Suspect]
     Active Substance: CYTARABINE
     Dosage: UNK
  14. VENETOCLAX. [Suspect]
     Active Substance: VENETOCLAX
     Indication: MYELOID LEUKAEMIA
     Dosage: 50 MG, DAY 2-28 OF 28 CYCLE 1, 1 IN 1 D, FREQ: CYCLICAL
     Route: 048
     Dates: start: 20160112, end: 20160112
  15. LOMOTIL [Concomitant]
     Active Substance: ATROPINE SULFATE\DIPHENOXYLATE HYDROCHLORIDE
     Indication: DIARRHOEA
     Dosage: 1 DF, FREQ: 4 DAY; INTERVAL: 1
     Route: 048
     Dates: start: 20160115
  16. SENNA /00142201/ [Concomitant]
     Active Substance: SENNA LEAF
     Indication: CONSTIPATION PROPHYLAXIS
     Dosage: 2 DF, FREQ: 1 DAY, INTERVAL: 1
     Route: 048
     Dates: start: 20160119
  17. ALLOPURINOL. [Concomitant]
     Active Substance: ALLOPURINOL
     Indication: TUMOUR LYSIS SYNDROME
     Dosage: 300 MG
     Route: 048
     Dates: start: 20160107
  18. FOLIC ACID. [Concomitant]
     Active Substance: FOLIC ACID
     Indication: VITAMIN SUPPLEMENTATION
     Dosage: 1 MG, FREQ: 1 DAY; INTERVAL: 1
     Route: 048
     Dates: start: 20130101
  19. VENETOCLAX. [Suspect]
     Active Substance: VENETOCLAX
     Dosage: 200 MG, FREQ: 1 DAY; INTERVAL: 1
     Route: 048
     Dates: start: 20160114, end: 20160114
  20. NADOLOL. [Concomitant]
     Active Substance: NADOLOL
     Indication: HYPERTENSION
     Dosage: 20 MG, FREQ: 1 DAY; INTERVAL: 1
     Route: 048
     Dates: start: 20120101
  21. VENETOCLAX. [Suspect]
     Active Substance: VENETOCLAX
     Dosage: 100 MG, FREQ: 1 DAY; INTERVAL: 1
     Route: 048
     Dates: start: 20160113, end: 20160113
  22. PROTONIX [Concomitant]
     Active Substance: PANTOPRAZOLE SODIUM
     Indication: GASTROOESOPHAGEAL REFLUX DISEASE
     Dosage: 40 MG, FREQ: 1 DAY; INTERVAL: 1
     Dates: start: 20130101
  23. METFORMIN [Concomitant]
     Active Substance: METFORMIN HYDROCHLORIDE
     Indication: HYPERGLYCAEMIA
     Dosage: 100 MG, FREQ: 2 DAY; INTERVAL: 1
     Route: 048
     Dates: start: 20160119
  24. TRAZODONE [Concomitant]
     Active Substance: TRAZODONE HYDROCHLORIDE
     Indication: INSOMNIA
     Dosage: 50 MG, AT BEDTIME; FREQ: 1 DAY; INTERVAL: 1
     Dates: start: 20160113

REACTIONS (1)
  - Platelet count decreased [Recovered/Resolved]

NARRATIVE: CASE EVENT DATE: 20160324
